FAERS Safety Report 9852183 (Version 2)
Quarter: 2014Q1

REPORT INFORMATION
  Report Type: Spontaneous
  Country: US (occurrence: US)
  Receive Date: 20140129
  Receipt Date: 20140129
  Transmission Date: 20141002
  Serious: Yes (Other)
  Sender: FDA-Public Use
  Company Number: US-BRACCO-009718

PATIENT
  Age: 51 Year
  Sex: Female
  Weight: 105 kg

DRUGS (4)
  1. MULTIHANCE [Suspect]
     Indication: NUCLEAR MAGNETIC RESONANCE IMAGING
     Route: 042
     Dates: start: 20130709, end: 20130709
  2. ATENOLOL [Concomitant]
  3. POTASSIUM CHLORIDE [Concomitant]
  4. LYRICA [Concomitant]

REACTIONS (1)
  - Contrast media reaction [Recovered/Resolved]
